FAERS Safety Report 5843330-9 (Version None)
Quarter: 2008Q3

REPORT INFORMATION
  Report Type: 
  Country: None (occurrence: None)
  Receive Date: 20080812
  Receipt Date: 20080812
  Transmission Date: 20090109
  Serious: Yes (Other)
  Sender: FDA-Public Use
  Company Number: None

PATIENT
  Age: 30 Year
  Sex: Male
  Weight: 72.5755 kg

DRUGS (2)
  1. CIPRO [Suspect]
     Indication: SINUSITIS
     Dosage: 500 MG TWICE A DAY PO
     Route: 048
     Dates: start: 20080711, end: 20080715
  2. LEVAQUIN [Suspect]
     Indication: SINUSITIS
     Dosage: 500 MG ONCE A DAY PO
     Route: 048
     Dates: start: 20080716, end: 20080717

REACTIONS (3)
  - BURNING SENSATION [None]
  - INSOMNIA [None]
  - PARAESTHESIA [None]
